FAERS Safety Report 20660317 (Version 2)
Quarter: 2023Q1

REPORT INFORMATION
  Report Type: Report from Study
  Country: US (occurrence: US)
  Receive Date: 20220331
  Receipt Date: 20230224
  Transmission Date: 20230417
  Serious: Yes (Hospitalization, Other)
  Sender: FDA-Public Use
  Company Number: US-GILEAD-2022-0570481

PATIENT
  Age: 67 Year
  Sex: Female
  Weight: 64 kg

DRUGS (8)
  1. AXICABTAGENE CILOLEUCEL [Suspect]
     Active Substance: AXICABTAGENE CILOLEUCEL
     Indication: High-grade B-cell lymphoma
     Dosage: 68
     Route: 042
     Dates: start: 20201124, end: 20201124
  2. CYCLOPHOSPHAMIDE [Suspect]
     Active Substance: CYCLOPHOSPHAMIDE
     Indication: Bone marrow conditioning regimen
     Dosage: 500
     Route: 042
     Dates: start: 20201119, end: 20201121
  3. FLUDARABINE [Suspect]
     Active Substance: FLUDARABINE PHOSPHATE
     Indication: Bone marrow conditioning regimen
     Dosage: 30
     Route: 042
     Dates: start: 20201119, end: 20201121
  4. RITUXIMAB [Suspect]
     Active Substance: RITUXIMAB
     Indication: B-cell lymphoma
     Dosage: 633.75
     Route: 042
     Dates: start: 20201119, end: 20201119
  5. RITUXIMAB [Suspect]
     Active Substance: RITUXIMAB
     Dosage: 633.75
     Route: 042
     Dates: start: 20201216, end: 20201216
  6. VALIUM [Concomitant]
     Active Substance: DIAZEPAM
     Dosage: UNK
     Dates: start: 20201221
  7. MEPRON [Concomitant]
     Active Substance: ATOVAQUONE
     Dosage: UNK
     Dates: start: 20201229
  8. ZYLOPRIM [Concomitant]
     Active Substance: ALLOPURINOL

REACTIONS (4)
  - COVID-19 pneumonia [Recovered/Resolved]
  - Febrile neutropenia [Recovered/Resolved]
  - Sepsis [Recovered/Resolved]
  - Pyrexia [Recovered/Resolved]

NARRATIVE: CASE EVENT DATE: 20220216
